FAERS Safety Report 5615199-9 (Version None)
Quarter: 2008Q1

REPORT INFORMATION
  Report Type: 
  Country: None (occurrence: None)
  Receive Date: 20080204
  Receipt Date: 20080204
  Transmission Date: 20080703
  Serious: Yes (Hospitalization)
  Sender: FDA-Public Use
  Company Number: None

PATIENT
  Age: 51 Year
  Sex: Male
  Weight: 79.83 kg

DRUGS (2)
  1. CLINDAMYCIN HCL [Suspect]
     Indication: LOCALISED INFECTION
     Dosage: 450MG QID PO
     Route: 048
     Dates: start: 20080126, end: 20080127
  2. MORPHINE [Suspect]
     Indication: PAIN
     Dosage: 15MG BID PO
     Route: 048
     Dates: start: 20080127, end: 20080130

REACTIONS (7)
  - ABDOMINAL PAIN UPPER [None]
  - DYSPEPSIA [None]
  - NAUSEA [None]
  - NECK PAIN [None]
  - ORAL INTAKE REDUCED [None]
  - OXYGEN SATURATION DECREASED [None]
  - VOMITING [None]
